FAERS Safety Report 23470398 (Version 1)
Quarter: 2024Q1

REPORT INFORMATION
  Report Type: Spontaneous
  Country: CA (occurrence: CA)
  Receive Date: 20240202
  Receipt Date: 20240202
  Transmission Date: 20240410
  Serious: Yes (Hospitalization, Other)
  Sender: FDA-Public Use
  Company Number: CA-002147023-NVSC2024CA020914

PATIENT
  Sex: Female

DRUGS (1)
  1. CYCLOSPORINE [Suspect]
     Active Substance: CYCLOSPORINE
     Indication: Product used for unknown indication
     Dosage: UNK
     Route: 065
     Dates: start: 20230412, end: 20230619

REACTIONS (6)
  - Perineal ulceration [Recovering/Resolving]
  - Ulcer [Unknown]
  - Secretion discharge [Unknown]
  - Herpes simplex [Unknown]
  - Skin erosion [Unknown]
  - Pain [Unknown]
